FAERS Safety Report 6681406-7 (Version None)
Quarter: 2010Q2

REPORT INFORMATION
  Report Type: 
  Country: None (occurrence: None)
  Receive Date: 20100414
  Receipt Date: 20100407
  Transmission Date: 20101027
  Serious: Yes (Hospitalization)
  Sender: FDA-Public Use
  Company Number: B0646360A

PATIENT
  Age: 27 Year
  Sex: Male
  Weight: 95 kg

DRUGS (1)
  1. CLAVAMOX [Suspect]
     Indication: TYMPANIC MEMBRANE PERFORATION
     Dosage: 1G SINGLE DOSE
     Route: 065

REACTIONS (5)
  - CHILLS [None]
  - DERMATITIS EXFOLIATIVE [None]
  - DRUG RASH WITH EOSINOPHILIA AND SYSTEMIC SYMPTOMS [None]
  - EOSINOPHILIA [None]
  - TRANSAMINASES INCREASED [None]
